FAERS Safety Report 9993370 (Version 2)
Quarter: 2014Q1

REPORT INFORMATION
  Report Type: Spontaneous
  Country: PT (occurrence: PT)
  Receive Date: 20140310
  Receipt Date: 20140325
  Transmission Date: 20141002
  Serious: Yes (Other)
  Sender: FDA-Public Use
  Company Number: PT-ABBVIE-14P-130-1210821-00

PATIENT
  Age: 49 Year
  Sex: Female
  Weight: 64 kg

DRUGS (3)
  1. KLACID [Suspect]
     Indication: PHARYNGITIS
     Dates: start: 20140204, end: 20140212
  2. DEFLAZACORT [Interacting]
     Indication: ALLERGIC PHARYNGITIS
     Dosage: 30 MILLIGRAM; 1/2 TABLET TWICE A DAY
     Dates: start: 20140206, end: 20140207
  3. KESTINE [Interacting]
     Indication: PHARYNGITIS
     Dates: start: 20140204, end: 20140212

REACTIONS (3)
  - Drug interaction [Unknown]
  - Face oedema [Recovered/Resolved]
  - Tongue discolouration [Recovered/Resolved]
